FAERS Safety Report 16161528 (Version 1)
Quarter: 2019Q2

REPORT INFORMATION
  Report Type: Spontaneous
  Country: TW (occurrence: TW)
  Receive Date: 20190405
  Receipt Date: 20190405
  Transmission Date: 20190711
  Serious: Yes (Other)
  Sender: FDA-Public Use
  Company Number: TW-ROCHE-2291688

PATIENT
  Age: 47 Year
  Sex: Female
  Weight: 44 kg

DRUGS (5)
  1. LETROZOLE. [Concomitant]
     Active Substance: LETROZOLE
     Indication: BREAST CANCER METASTATIC
     Route: 065
     Dates: start: 20171221
  2. IBRANCE [Suspect]
     Active Substance: PALBOCICLIB
     Indication: BREAST CANCER FEMALE
     Route: 065
     Dates: start: 20171221
  3. HERCEPTIN [Suspect]
     Active Substance: TRASTUZUMAB
     Indication: BREAST CANCER METASTATIC
     Route: 065
     Dates: start: 20180109
  4. XELODA [Suspect]
     Active Substance: CAPECITABINE
     Indication: BREAST CANCER METASTATIC
     Route: 065
     Dates: start: 20170222
  5. LAPATINIB [Concomitant]
     Active Substance: LAPATINIB
     Indication: BREAST CANCER METASTATIC
     Route: 065
     Dates: start: 20170222

REACTIONS (8)
  - Neutropenia [Unknown]
  - Decreased appetite [Unknown]
  - Weight decreased [Unknown]
  - Rash generalised [Unknown]
  - Nausea [Unknown]
  - Diarrhoea [Unknown]
  - Pruritus [Unknown]
  - Mucosal inflammation [Unknown]

NARRATIVE: CASE EVENT DATE: 2018
